FAERS Safety Report 10795942 (Version 1)
Quarter: 2015Q1

REPORT INFORMATION
  Report Type: Spontaneous
  Country: IL (occurrence: IL)
  Receive Date: 20150216
  Receipt Date: 20150216
  Transmission Date: 20150721
  Serious: Yes (Hospitalization)
  Sender: FDA-Public Use
  Company Number: IL-ROCHE-1537685

PATIENT
  Sex: Male

DRUGS (2)
  1. GAZYVA [Suspect]
     Active Substance: OBINUTUZUMAB
     Indication: CHRONIC LYMPHOCYTIC LEUKAEMIA
     Dosage: RECOMMENDED DOSES ON DAY 1-2 OF THE TREATMENT CYCLE
     Route: 042
  2. GAZYVA [Suspect]
     Active Substance: OBINUTUZUMAB
     Dosage: RECOMMENDED DOSES ON DAY 1-2 OF THE TREATMENT CYCLE
     Route: 042

REACTIONS (2)
  - Pyrexia [Unknown]
  - Pancytopenia [Recovering/Resolving]
